FAERS Safety Report 17448302 (Version 3)
Quarter: 2020Q1

REPORT INFORMATION
  Report Type: Spontaneous
  Country: US (occurrence: US)
  Receive Date: 20200223
  Receipt Date: 20200319
  Transmission Date: 20200409
  Serious: No
  Sender: FDA-Public Use
  Company Number: US-AMGEN-USASP2020029730

PATIENT
  Age: 70 Year
  Sex: Female

DRUGS (3)
  1. NEULASTA [Suspect]
     Active Substance: PEGFILGRASTIM
     Dosage: UNK
     Route: 065
  2. NEULASTA [Suspect]
     Active Substance: PEGFILGRASTIM
     Indication: NEUTROPENIA
     Dosage: UNK
     Route: 065
  3. NEULASTA [Suspect]
     Active Substance: PEGFILGRASTIM
     Dosage: UNK
     Route: 065

REACTIONS (11)
  - Chest pain [Recovered/Resolved]
  - Sleep disorder due to a general medical condition [Unknown]
  - Bone pain [Unknown]
  - White blood cell count abnormal [Unknown]
  - Fatigue [Unknown]
  - Sluggishness [Unknown]
  - Neutrophil count abnormal [Unknown]
  - Abdominal pain [Unknown]
  - Tremor [Unknown]
  - Paraesthesia [Unknown]
  - Neuralgia [Recovering/Resolving]

NARRATIVE: CASE EVENT DATE: 20200218
